FAERS Safety Report 23754492 (Version 1)
Quarter: 2024Q2

REPORT INFORMATION
  Report Type: Spontaneous
  Country: JP (occurrence: JP)
  Receive Date: 20240418
  Receipt Date: 20240418
  Transmission Date: 20240716
  Serious: Yes (Other)
  Sender: FDA-Public Use
  Company Number: JP-CELLTRION INC.-2024JP007700

PATIENT

DRUGS (2)
  1. BEVACIZUMAB [Suspect]
     Active Substance: BEVACIZUMAB
     Indication: Hepatocellular carcinoma
     Dosage: 15 MG/KG INITIATED AS ONE COURSE OVER 3 WEEKS; RECEIVED 22ND CYCLE UNTIL TUMOR PROGRESSION
  2. ATEZOLIZUMAB [Suspect]
     Active Substance: ATEZOLIZUMAB
     Indication: Hepatocellular carcinoma
     Dosage: 1200 MG INITIATED AS ONE COURSE OVER 3 WEEKS; RECEIVED 22ND CYCLE UNTIL TUMOR PROGRESSION

REACTIONS (4)
  - Hypothyroidism [Unknown]
  - Skin disorder [Unknown]
  - Therapy responder [Unknown]
  - Intentional product use issue [Unknown]
